FAERS Safety Report 4681965-X (Version None)
Quarter: 2005Q2

REPORT INFORMATION
  Report Type: 
  Country: None (occurrence: None)
  Receive Date: 20050602
  Receipt Date: 20050524
  Transmission Date: 20051028
  Serious: Yes (Hospitalization)
  Sender: FDA-Public Use
  Company Number: COV2-2005-00036

PATIENT
  Age: 76 Year
  Sex: Male
  Weight: 75.3 kg

DRUGS (16)
  1. FOSRENOL [Suspect]
     Indication: HYPERPHOSPHATAEMIA
     Dosage: 750 MG, 3X/DAY:TID,ORAL
     Route: 048
     Dates: start: 20050419
  2. NEPHRO-VITE RX (VITAMIN B NOS, FOLIC ACID, ASCORBIC ACID) [Concomitant]
  3. COMBIVENT /GFR/ (IPRATROPIUM BROMIDE, SALBUTAMOL SULFATE) [Concomitant]
  4. SINGULAIR (MONTELUKAST) [Concomitant]
  5. PLAVIX [Concomitant]
  6. CELEBREX [Concomitant]
  7. DESYREL [Concomitant]
  8. LIPITOR [Concomitant]
  9. XANAX [Concomitant]
  10. IMDUR [Concomitant]
  11. ACCUPRIL [Concomitant]
  12. LASIX [Concomitant]
  13. ACTOS /USA/ (PIOGLITAZONE HYDROCHLORIDE) [Concomitant]
  14. AMBIEN [Concomitant]
  15. ALLEGRA [Concomitant]
  16. SEREVENT [Concomitant]

REACTIONS (1)
  - CARDIAC FAILURE CONGESTIVE [None]
